FAERS Safety Report 11771571 (Version 1)
Quarter: 2015Q4

REPORT INFORMATION
  Report Type: Spontaneous
  Country: US (occurrence: None)
  Receive Date: 20151123
  Receipt Date: 20151123
  Transmission Date: 20160304
  Serious: Yes (Other)
  Sender: FDA-Public Use
  Company Number: None

PATIENT
  Age: 17 Month
  Sex: Male
  Weight: 11.34 kg

DRUGS (5)
  1. MONTELUKAST [Suspect]
     Active Substance: MONTELUKAST SODIUM
     Indication: ASTHMA
     Dosage: 1 PILL
     Route: 048
     Dates: start: 20150611, end: 20150617
  2. PULMACOURTE [Concomitant]
  3. MULTI-VITAMIN [Concomitant]
     Active Substance: .ALPHA.-TOCOPHEROL ACETATE, DL-\ASCORBIC ACID\CYANOCOBALAMIN\FLUORIDE ION\FOLIC ACID\NIACIN\PYRIDOXINE\RIBOFLAVIN\THIAMINE\VITAMIN A\VITAMIN D
  4. SINGULAIR [Concomitant]
     Active Substance: MONTELUKAST SODIUM
  5. ABUTEROL [Concomitant]

REACTIONS (8)
  - Depression [None]
  - Sleep terror [None]
  - Unevaluable event [None]
  - Mood swings [None]
  - Crying [None]
  - Sleep disorder [None]
  - Product substitution issue [None]
  - Middle insomnia [None]

NARRATIVE: CASE EVENT DATE: 20150615
